FAERS Safety Report 10069943 (Version 1)
Quarter: 2014Q2

REPORT INFORMATION
  Report Type: Spontaneous
  Country: US (occurrence: None)
  Receive Date: 20140409
  Receipt Date: 20140409
  Transmission Date: 20141212
  Serious: Yes (Disabling)
  Sender: FDA-Public Use
  Company Number: None

PATIENT
  Age: 59 Year
  Sex: Male
  Weight: 83.92 kg

DRUGS (3)
  1. ZICAM [Suspect]
     Indication: NASOPHARYNGITIS
     Dates: start: 20100101, end: 20110202
  2. ATENOLOL [Concomitant]
  3. HYDROCHLORIZED [Concomitant]

REACTIONS (1)
  - Anosmia [None]
